FAERS Safety Report 16967818 (Version 1)
Quarter: 2019Q4

REPORT INFORMATION
  Report Type: Spontaneous
  Country: US (occurrence: US)
  Receive Date: 20190911
  Receipt Date: 20190911
  Transmission Date: 20200122
  Serious: Yes (Hospitalization)
  Sender: FDA-Public Use
  Company Number: None

PATIENT
  Age: 28 Year
  Sex: Male

DRUGS (10)
  1. CYPROHEPTAD [Concomitant]
  2. FOLIC ACID. [Concomitant]
     Active Substance: FOLIC ACID
  3. ASPIRTIN [Concomitant]
  4. JADENU [Suspect]
     Active Substance: DEFERASIROX
     Indication: IRON METABOLISM DISORDER
     Route: 048
     Dates: start: 20160809
  5. LISINOPRIL. [Concomitant]
     Active Substance: LISINOPRIL
  6. NIZATDINE [Concomitant]
  7. METHADONE [Concomitant]
     Active Substance: METHADONE HYDROCHLORIDE
  8. NAPROXEN. [Concomitant]
     Active Substance: NAPROXEN
  9. AMITRIPTYLIN [Concomitant]
     Active Substance: AMITRIPTYLINE
  10. ECOTRIN [Concomitant]
     Active Substance: ASPIRIN

REACTIONS (2)
  - Lumbar vertebral fracture [None]
  - Road traffic accident [None]

NARRATIVE: CASE EVENT DATE: 20190503
